FAERS Safety Report 20872622 (Version 1)
Quarter: 2022Q2

REPORT INFORMATION
  Report Type: Spontaneous
  Country: CA (occurrence: CA)
  Receive Date: 20220525
  Receipt Date: 20220525
  Transmission Date: 20220721
  Serious: Yes (Hospitalization, Other)
  Sender: FDA-Public Use
  Company Number: CA-GILEAD-2022-0582505

PATIENT
  Weight: 90.703 kg

DRUGS (5)
  1. VEKLURY [Suspect]
     Active Substance: REMDESIVIR
     Indication: COVID-19
     Dosage: 100 MG, QD
     Route: 041
  2. LOVENOX [Concomitant]
     Active Substance: ENOXAPARIN SODIUM
  3. DOXYCYCLINE [Concomitant]
     Active Substance: DOXYCYCLINE
  4. DECADRON [Concomitant]
     Active Substance: DEXAMETHASONE
  5. CEFTRIAXONE [Concomitant]
     Active Substance: CEFTRIAXONE

REACTIONS (1)
  - Pancreatitis [Recovered/Resolved]
